FAERS Safety Report 8449707-X (Version None)
Quarter: 2012Q2

REPORT INFORMATION
  Report Type: 
  Country: None (occurrence: None)
  Receive Date: 20120620
  Receipt Date: 20120614
  Transmission Date: 20120825
  Serious: No
  Sender: FDA-Public Use
  Company Number: US-PFIZER INC-2012144515

PATIENT
  Sex: Female
  Weight: 113 kg

DRUGS (4)
  1. SUTENT [Suspect]
     Dosage: UNK
     Dates: start: 20120604
  2. VITAMIN D [Concomitant]
     Dosage: UNK
  3. VITAMIN E [Concomitant]
     Dosage: UNK
  4. SUTENT [Suspect]
     Indication: METASTATIC RENAL CELL CARCINOMA
     Dosage: 50 MG, CYCLIC
     Dates: start: 20120123, end: 20120101

REACTIONS (3)
  - ORAL PAIN [None]
  - HYPOAESTHESIA [None]
  - SURGERY [None]
